FAERS Safety Report 11313150 (Version 1)
Quarter: 2015Q3

REPORT INFORMATION
  Report Type: Spontaneous
  Country: US (occurrence: US)
  Receive Date: 20150727
  Receipt Date: 20150727
  Transmission Date: 20151125
  Serious: No
  Sender: FDA-Public Use
  Company Number: US-ABBVIE-15P-163-1358729-00

PATIENT
  Age: 52 Year
  Sex: Female

DRUGS (2)
  1. PLEXUS [Concomitant]
     Indication: PRODUCT USED FOR UNKNOWN INDICATION
  2. SYNTHROID [Suspect]
     Active Substance: LEVOTHYROXINE SODIUM
     Indication: HYPOTHYROIDISM
     Route: 065

REACTIONS (7)
  - Mood altered [Unknown]
  - Weight increased [Unknown]
  - Asthenia [Unknown]
  - Trichorrhexis [Unknown]
  - Depression [Unknown]
  - Onychoclasis [Unknown]
  - Dry skin [Unknown]
